FAERS Safety Report 6929107-1 (Version None)
Quarter: 2010Q3

REPORT INFORMATION
  Report Type: 
  Country: None (occurrence: None)
  Receive Date: 20100811
  Receipt Date: 20100803
  Transmission Date: 20110219
  Serious: Yes (Hospitalization)
  Sender: FDA-Public Use
  Company Number: TCI2010A02216

PATIENT
  Age: 53 Year
  Sex: Male

DRUGS (4)
  1. TAKEPRON OD TABLETS 30(LANSOPRAZOLE) [Suspect]
     Indication: GASTRIC ULCER
     Dosage: 30 MG (30 MG,1 IN 1 D) PER ORAL
     Route: 048
     Dates: start: 20100427, end: 20100517
  2. OMEPRAZOLE [Suspect]
     Dosage: 40 MG (20 MG,2 IN 1 D) INTRAVENOUS
     Route: 042
     Dates: start: 20100518, end: 20100522
  3. CANDESARTAN CILEXETIL [Concomitant]
  4. AMLODIPINE [Concomitant]

REACTIONS (8)
  - BIOPSY KIDNEY ABNORMAL [None]
  - BLOOD IMMUNOGLOBULIN E INCREASED [None]
  - BLOOD URINE PRESENT [None]
  - DNA ANTIBODY POSITIVE [None]
  - GASTRIC ULCER PERFORATION [None]
  - LUPUS-LIKE SYNDROME [None]
  - PYREXIA [None]
  - URINARY CASTS PRESENT [None]
